FAERS Safety Report 24230138 (Version 3)
Quarter: 2024Q4

REPORT INFORMATION
  Report Type: Report from Study
  Country: CO (occurrence: CO)
  Receive Date: 20240820
  Receipt Date: 20241016
  Transmission Date: 20250114
  Serious: Yes (Hospitalization)
  Sender: ABBVIE
  Company Number: CO-JNJFOC-20240839408

PATIENT
  Age: 81 Year
  Sex: Female
  Weight: 82 kg

DRUGS (1)
  1. IMBRUVICA [Suspect]
     Active Substance: IBRUTINIB
     Indication: Chronic lymphocytic leukaemia
     Route: 048
     Dates: start: 20240216, end: 20240620

REACTIONS (8)
  - Femur fracture [Not Recovered/Not Resolved]
  - Pyrexia [Recovering/Resolving]
  - Headache [Recovering/Resolving]
  - Chronic lymphocytic leukaemia [Not Recovered/Not Resolved]
  - Vomiting [Recovering/Resolving]
  - Hip fracture [Not Recovered/Not Resolved]
  - Drug ineffective [Not Recovered/Not Resolved]
  - Spinal fracture [Not Recovered/Not Resolved]

NARRATIVE: CASE EVENT DATE: 20240701
